FAERS Safety Report 16205344 (Version 1)
Quarter: 2019Q2

REPORT INFORMATION
  Report Type: Other
  Country: DE (occurrence: DE)
  Receive Date: 20190417
  Receipt Date: 20190417
  Transmission Date: 20190711
  Serious: Yes (Hospitalization)
  Sender: FDA-Public Use
  Company Number: DE-LUPIN PHARMACEUTICALS INC.-2019-02342

PATIENT
  Age: 54 Year
  Sex: Female

DRUGS (16)
  1. VENLAFAXINE [Interacting]
     Active Substance: VENLAFAXINE HYDROCHLORIDE
     Indication: PRODUCT USED FOR UNKNOWN INDICATION
     Dosage: 75 MILLIGRAM, QD
     Route: 065
     Dates: start: 20170310
  2. PLAVIX [Interacting]
     Active Substance: CLOPIDOGREL BISULFATE
     Indication: PRODUCT USED FOR UNKNOWN INDICATION
     Dosage: 75 MILLIGRAM, QD SINCE RECORDING
     Route: 065
  3. NORTRILEN [Interacting]
     Active Substance: NORTRIPTYLINE
     Dosage: 75 MILLIGRAM, QD
     Route: 065
     Dates: start: 20170310, end: 20170315
  4. LITHIUM APOGEPHA [Concomitant]
     Active Substance: LITHIUM CARBONATE
     Indication: PRODUCT USED FOR UNKNOWN INDICATION
     Dosage: 225 MILLIGRAM, QD
     Route: 065
     Dates: start: 20170321
  5. SIMVAHEXAL [Interacting]
     Active Substance: SIMVASTATIN
     Indication: PRODUCT USED FOR UNKNOWN INDICATION
     Dosage: 20 MILLIGRAM, QD, SINCE RECORDING
     Route: 065
  6. VIGANTOLETTEN [Interacting]
     Active Substance: CHOLECALCIFEROL
     Indication: PRODUCT USED FOR UNKNOWN INDICATION
     Dosage: 20000 INTERNATIONAL UNIT, QD, SINCE RECORDING
     Route: 065
  7. CALCIUM SANDOZ [CALCIUM CARBONATE;CALCIUM GLUCONATE] [Concomitant]
     Indication: PRODUCT USED FOR UNKNOWN INDICATION
     Dosage: 500 MILLIGRAM, QD, SINCE RECORDING
     Route: 065
  8. NORTRILEN [Interacting]
     Active Substance: NORTRIPTYLINE
     Dosage: 50 MILLIGRAM, QD
     Route: 065
     Dates: start: 20170323
  9. METOBETA [Interacting]
     Active Substance: METOPROLOL TARTRATE
     Indication: PRODUCT USED FOR UNKNOWN INDICATION
     Dosage: 190 MILLIGRAM, QD, SINCE RECORDING
     Route: 065
  10. MAGNESIUM [Concomitant]
     Active Substance: MAGNESIUM
     Indication: PRODUCT USED FOR UNKNOWN INDICATION
     Dosage: 150 MILLIGRAM, QD, SINCE RECORDING
     Route: 065
  11. AMLODIPINE [Suspect]
     Active Substance: AMLODIPINE BESYLATE
     Indication: PRODUCT USED FOR UNKNOWN INDICATION
     Dosage: 5 MILLIGRAM, QD, SINCE RECORDING
     Route: 065
  12. NORTRILEN [Interacting]
     Active Substance: NORTRIPTYLINE
     Indication: PRODUCT USED FOR UNKNOWN INDICATION
     Dosage: 25 MILLIGRAM, QD
     Route: 065
     Dates: start: 20170302, end: 20170305
  13. CALCIUM SANDOZ [CALCIUM GLUBIONATE] [Concomitant]
     Indication: PRODUCT USED FOR UNKNOWN INDICATION
     Dosage: 500 MILLIGRAM, QD, SINCE RECORDING
     Route: 065
  14. VALDOXAN [Concomitant]
     Active Substance: AGOMELATINE
     Indication: PRODUCT USED FOR UNKNOWN INDICATION
     Dosage: 50 MILLIGRAM, QD, DEPOSED 1 DAY BEFORE
     Route: 065
  15. NORTRILEN [Interacting]
     Active Substance: NORTRIPTYLINE
     Dosage: 50 MILLIGRAM, QD
     Route: 065
     Dates: start: 20170306, end: 20170309
  16. NORTRILEN [Interacting]
     Active Substance: NORTRIPTYLINE
     Dosage: 100 MILLIGRAM, QD
     Route: 065
     Dates: start: 20170316, end: 20170322

REACTIONS (1)
  - Sleep disorder [Recovered/Resolved]

NARRATIVE: CASE EVENT DATE: 20170322
